FAERS Safety Report 9447914 (Version 1)
Quarter: 2013Q3

REPORT INFORMATION
  Report Type: Report from Study
  Country: AU (occurrence: AU)
  Receive Date: 20130808
  Receipt Date: 20130808
  Transmission Date: 20140515
  Serious: Yes (Disabling, Other)
  Sender: FDA-Public Use
  Company Number: PHHY2013AU063849

PATIENT
  Sex: Male

DRUGS (8)
  1. SANDOSTATIN LAR [Suspect]
     Indication: CARCINOID SYNDROME
     Dosage: 30 MG, UNK
     Route: 030
  2. VITAMIN B12 [Concomitant]
     Dosage: UNK UKN, UNK
  3. VITAMIN D [Concomitant]
     Dosage: UNK UKN, UNK
  4. MAGNESIUM [Concomitant]
     Dosage: UNK UKN, UNK
  5. QUESTRAN [Concomitant]
     Indication: DIARRHOEA
     Dosage: UNK UKN, QID
     Route: 048
  6. GASTRO-STOP [Concomitant]
     Dosage: UNK UKN, UNK
  7. IMMODIN [Concomitant]
     Indication: DIARRHOEA
     Dosage: UNK UKN, QID
     Route: 048
  8. CREON FORTE [Concomitant]
     Indication: DIARRHOEA
     Dosage: 4000 U, TID
     Route: 048

REACTIONS (3)
  - Pancreatic disorder [Recovering/Resolving]
  - Steatorrhoea [Recovering/Resolving]
  - Lethargy [Not Recovered/Not Resolved]
